FAERS Safety Report 14694905 (Version 1)
Quarter: 2018Q1

REPORT INFORMATION
  Report Type: Spontaneous
  Country: FR (occurrence: FR)
  Receive Date: 20180329
  Receipt Date: 20180329
  Transmission Date: 20180509
  Serious: Yes (Hospitalization)
  Sender: FDA-Public Use
  Company Number: FR-PFIZER INC-2018129442

PATIENT
  Age: 53 Year
  Sex: Female

DRUGS (7)
  1. SIFROL [Concomitant]
     Active Substance: PRAMIPEXOLE
     Route: 048
  2. EFFEXOR [Suspect]
     Active Substance: VENLAFAXINE HYDROCHLORIDE
     Indication: DEPRESSION
     Dosage: 37.5 MG, 1X/DAY
     Route: 048
     Dates: start: 20180110, end: 20180206
  3. ARCOXIA [Suspect]
     Active Substance: ETORICOXIB
     Indication: ARTHRITIS
     Dosage: UNSPECIFIED
     Route: 048
     Dates: start: 20180101, end: 20180125
  4. COLPRONE [Concomitant]
     Active Substance: MEDROGESTONE
     Dosage: UNK
     Route: 048
     Dates: start: 201709, end: 201711
  5. EFFEXOR [Suspect]
     Active Substance: VENLAFAXINE HYDROCHLORIDE
     Dosage: 75 MG, UNK
  6. OMEPRAZOLE. [Concomitant]
     Active Substance: OMEPRAZOLE
     Route: 048
  7. EBASTINE [Concomitant]
     Active Substance: EBASTINE
     Route: 048

REACTIONS (1)
  - Pulmonary embolism [Recovered/Resolved]

NARRATIVE: CASE EVENT DATE: 20180206
